FAERS Safety Report 4981435-5 (Version None)
Quarter: 2006Q2

REPORT INFORMATION
  Report Type: 
  Country: None (occurrence: None)
  Receive Date: 20060419
  Receipt Date: 20060321
  Transmission Date: 20061013
  Serious: Yes (Other)
  Sender: FDA-Public Use
  Company Number: 2006-US-00701

PATIENT
  Age: 33 Year
  Sex: Male

DRUGS (4)
  1. CLOZAPINE [Suspect]
     Indication: SCHIZOPHRENIA, PARANOID TYPE
     Dosage: 350 MG, QD, ORAL
     Route: 048
     Dates: start: 19991201
  2. CHEMOTHERAPY [Suspect]
     Indication: METASTASIS
     Dosage: , CYCLICAL , INTRAVENOUS
     Route: 042
  3. FLUVOXAMINE MALEATE [Concomitant]
  4. CLONAZEPAM [Concomitant]

REACTIONS (4)
  - GRANULOCYTOPENIA [None]
  - LEUKOPENIA [None]
  - METASTASES TO LUNG [None]
  - SARCOMA [None]
